FAERS Safety Report 16673615 (Version 1)
Quarter: 2019Q3

REPORT INFORMATION
  Report Type: Spontaneous
  Country: CH (occurrence: CH)
  Receive Date: 20190806
  Receipt Date: 20190806
  Transmission Date: 20191004
  Serious: Yes (Hospitalization)
  Sender: FDA-Public Use
  Company Number: CH-PFIZER INC-2019330089

PATIENT
  Age: 68 Year
  Sex: Male
  Weight: 71 kg

DRUGS (7)
  1. PREDNISON STREULI [Suspect]
     Active Substance: PREDNISONE
     Dosage: 75 MG, DAILY (1-0-0.5)
     Route: 048
     Dates: start: 20190502, end: 20190507
  2. ULTIBRO BREEZHALER [Concomitant]
     Active Substance: GLYCOPYRRONIUM\INDACATEROL
     Dosage: 1 DF (110MCG/50MCG), 1X/DAY (1-0-0-0)
     Route: 055
  3. DUODART [Concomitant]
     Active Substance: DUTASTERIDE\TAMSULOSIN
     Dosage: 1 DF (0,5/0,4 MG), 1X/DAY (0-0-1-0)
     Route: 048
  4. VENTOLIN [Concomitant]
     Active Substance: ALBUTEROL SULFATE
     Dosage: 0.1 MG, 4X/DAY
     Route: 055
  5. ATROVENT [Concomitant]
     Active Substance: IPRATROPIUM BROMIDE
     Dosage: 1 DF (250MCG/2ML), 4X/DAY (1-1-1-1)
     Route: 055
  6. FLUIMUCIL [Concomitant]
     Active Substance: ACETYLCYSTEINE
     Dosage: 600 MG, 1X/DAY
     Route: 048
  7. SOLU-MEDROL [Suspect]
     Active Substance: METHYLPREDNISOLONE SODIUM SUCCINATE
     Indication: DYSPNOEA
     Dosage: 40 MG, 3X/DAY
     Route: 041
     Dates: start: 20190505, end: 20190515

REACTIONS (1)
  - Diplopia [Unknown]

NARRATIVE: CASE EVENT DATE: 20190507
